FAERS Safety Report 25548095 (Version 1)
Quarter: 2025Q3

REPORT INFORMATION
  Report Type: Spontaneous
  Country: CN (occurrence: CN)
  Receive Date: 20250714
  Receipt Date: 20250714
  Transmission Date: 20251021
  Serious: Yes (Life-Threatening)
  Sender: Kenvue
  Company Number: CN-KENVUE-20250702486

PATIENT

DRUGS (6)
  1. LOPERAMIDE HYDROCHLORIDE [Suspect]
     Active Substance: LOPERAMIDE HYDROCHLORIDE
     Indication: Gastroenteritis
     Dosage: 2 MILLIGRAM, TWICE A DAY
     Route: 048
     Dates: start: 20250621
  2. RACEANISODAMINE [Suspect]
     Active Substance: RACEANISODAMINE
     Indication: Gastroenteritis
     Dosage: 10 MILLIGRAM, THRICE A DAY
     Route: 048
     Dates: start: 20250621
  3. ESOMEPRAZOLE MAGNESIUM [Suspect]
     Active Substance: ESOMEPRAZOLE MAGNESIUM
     Indication: Gastrooesophageal reflux disease
     Dosage: 20 MILLIGRAM, ONCE A DAY
     Route: 048
     Dates: start: 20250621
  4. ESOMEPRAZOLE MAGNESIUM [Suspect]
     Active Substance: ESOMEPRAZOLE MAGNESIUM
     Indication: Vomiting
  5. TRIMEBUTINE MALEATE [Suspect]
     Active Substance: TRIMEBUTINE MALEATE
     Indication: Gastroenteritis
     Dosage: 100 MILLIGRAM, THRICE A DAY
     Route: 048
     Dates: start: 20250621
  6. Raceanisodamine hydrochloride [Concomitant]
     Indication: Gastroenteritis
     Route: 030
     Dates: start: 20250620

REACTIONS (10)
  - Rash maculo-papular [Recovering/Resolving]
  - Pruritus [Recovering/Resolving]
  - Stridor [Recovering/Resolving]
  - Respiration abnormal [Recovering/Resolving]
  - Dizziness [Recovering/Resolving]
  - Hypoaesthesia [Recovering/Resolving]
  - Asthenia [Recovering/Resolving]
  - Pain in extremity [Recovering/Resolving]
  - Off label use [Unknown]
  - Erythema [Recovering/Resolving]

NARRATIVE: CASE EVENT DATE: 20250621
